FAERS Safety Report 6647945-X (Version None)
Quarter: 2010Q1

REPORT INFORMATION
  Report Type: 
  Country: None (occurrence: None)
  Receive Date: 20100318
  Receipt Date: 20100303
  Transmission Date: 20100710
  Serious: Yes (Other)
  Sender: FDA-Public Use
  Company Number: 2009-11328

PATIENT
  Age: 48 Year
  Sex: Female

DRUGS (4)
  1. ALENDRONATE SODIUM [Suspect]
     Indication: OSTEOPOROSIS
     Dosage: 70 MG WEEKLY, ORAL
     Route: 048
  2. PREDNISOLONE [Concomitant]
  3. NOVOMIX (BIPHASIC INSULIN ASPART) [Concomitant]
  4. NOVOLOG [Concomitant]

REACTIONS (1)
  - HYPOGLYCAEMIA [None]
